FAERS Safety Report 21024079 (Version 1)
Quarter: 2022Q3

REPORT INFORMATION
  Report Type: Report from Study
  Country: US (occurrence: US)
  Receive Date: 20220629
  Receipt Date: 20220629
  Transmission Date: 20221027
  Serious: Yes (Other)
  Sender: FDA-Public Use
  Company Number: US-NOVARTISTESTPH-NVSC2022US144481

PATIENT
  Age: 65 Year
  Sex: Male

DRUGS (1)
  1. ENTRESTO [Suspect]
     Active Substance: SACUBITRIL\VALSARTAN
     Indication: Ejection fraction decreased
     Dosage: 97/103 MG, BID
     Route: 048
     Dates: start: 20220501

REACTIONS (3)
  - Angioedema [Unknown]
  - Contusion [Unknown]
  - Eye swelling [Unknown]

NARRATIVE: CASE EVENT DATE: 20220619
